FAERS Safety Report 17565890 (Version 1)
Quarter: 2020Q1

REPORT INFORMATION
  Report Type: Spontaneous
  Country: US (occurrence: US)
  Receive Date: 20200310
  Receipt Date: 20200310
  Transmission Date: 20200409
  Serious: No
  Sender: FDA-Public Use
  Company Number: None

PATIENT

DRUGS (2)
  1. ETOPOSIDE. [Suspect]
     Active Substance: ETOPOSIDE
     Dosage: ?          OTHER DOSE:100MG/5ML;?
  2. METHOTREXATE INJECTION [Suspect]
     Active Substance: METHOTREXATE
     Dosage: ?          OTHER DOSE:50MG/2ML;?

REACTIONS (1)
  - Product appearance confusion [None]
